FAERS Safety Report 4358226-1 (Version None)
Quarter: 2004Q2

REPORT INFORMATION
  Report Type: 
  Country: None (occurrence: None)
  Receive Date: 20040513
  Receipt Date: 20040513
  Transmission Date: 20050107
  Serious: No
  Sender: FDA-Public Use
  Company Number: None

PATIENT
  Sex: Male

DRUGS (1)
  1. SIMVASTATIN [Suspect]
     Indication: HYPERCHOLESTEROLAEMIA
     Dosage: 80 MG QHS ORAL
     Route: 048
     Dates: start: 20030707, end: 20031111

REACTIONS (2)
  - SWOLLEN TONGUE [None]
  - URTICARIA [None]
